FAERS Safety Report 7410192-8 (Version None)
Quarter: 2011Q2

REPORT INFORMATION
  Report Type: 
  Country: None (occurrence: None)
  Receive Date: 20110412
  Receipt Date: 20110407
  Transmission Date: 20111010
  Serious: Yes (Other)
  Sender: FDA-Public Use
  Company Number: AT-GENZYME-FLUD-1001046

PATIENT
  Age: 9 Year
  Sex: Female

DRUGS (8)
  1. MYCOPHENOLATE MOFETIL [Concomitant]
     Indication: PROPHYLAXIS AGAINST GRAFT VERSUS HOST DISEASE
     Dosage: 30 MG/KG, QD DAY -1 TO DAY +40
  2. COTRIM [Concomitant]
     Indication: PRODUCT USED FOR UNKNOWN INDICATION
  3. GANCICLOVIR [Concomitant]
     Indication: PRODUCT USED FOR UNKNOWN INDICATION
  4. FLUDARA [Suspect]
     Indication: WEGENER'S GRANULOMATOSIS
  5. CYCLOSPORINE [Concomitant]
     Indication: PROPHYLAXIS AGAINST GRAFT VERSUS HOST DISEASE
     Dosage: 2 MG/KG QD DAY 0 TIL DAY +300
  6. AMPHOTERICIN B [Concomitant]
     Indication: PRODUCT USED FOR UNKNOWN INDICATION
     Route: 048
  7. FLUDARA [Suspect]
     Indication: BONE MARROW CONDITIONING REGIMEN
     Dosage: 90 MG/M2, UNK
     Route: 065
  8. IMMUNE GLOBULIN NOS [Concomitant]
     Indication: PRODUCT USED FOR UNKNOWN INDICATION
     Dosage: 400 MG/KG, UNK
     Route: 042

REACTIONS (8)
  - SPLENOMEGALY [None]
  - HYPOGONADISM [None]
  - CHRONIC GRAFT VERSUS HOST DISEASE [None]
  - GRAFT VERSUS HOST DISEASE [None]
  - OSTEOPENIA [None]
  - INFECTION [None]
  - IMMUNE RECONSTITUTION SYNDROME [None]
  - THROMBOCYTOPENIA [None]
